FAERS Safety Report 18198346 (Version 8)
Quarter: 2021Q3

REPORT INFORMATION
  Report Type: Report from Study
  Country: BR (occurrence: BR)
  Receive Date: 20200826
  Receipt Date: 20210802
  Transmission Date: 20211014
  Serious: Yes (Life-Threatening, Hospitalization, Disabling, Other)
  Sender: FDA-Public Use
  Company Number: BR-ASTRAZENECA-2020SE62511

PATIENT
  Age: 27925 Day
  Sex: Male

DRUGS (94)
  1. CISPLATIN. [Suspect]
     Active Substance: CISPLATIN
     Indication: TRANSITIONAL CELL CARCINOMA
     Route: 042
     Dates: start: 20200401, end: 20200401
  2. DEXAMETHASONE. [Concomitant]
     Active Substance: DEXAMETHASONE
     Indication: CHEMOTHERAPY SIDE EFFECT PROPHYLAXIS
     Dosage: 8.0MG ONCE/SINGLE ADMINISTRATION
     Route: 042
     Dates: start: 20200408, end: 20200408
  3. CEFEPIME [Concomitant]
     Active Substance: CEFEPIME HYDROCHLORIDE
     Indication: NEUTROPENIA
     Dosage: 2.0G ONCE/SINGLE ADMINISTRATION
     Route: 042
     Dates: start: 20200509, end: 20200519
  4. DIPYRONE [Concomitant]
     Active Substance: DIPYRONE
     Indication: GROIN PAIN
     Route: 048
     Dates: start: 20200228
  5. TARGOCID [Concomitant]
     Active Substance: TEICOPLANIN
     Indication: FEBRILE NEUTROPENIA
     Route: 042
     Dates: start: 20200512, end: 20200519
  6. TARGOCID [Concomitant]
     Active Substance: TEICOPLANIN
     Indication: FEBRILE NEUTROPENIA
     Route: 042
     Dates: start: 20200512, end: 20200519
  7. PREDNISONE. [Concomitant]
     Active Substance: PREDNISONE
     Indication: FAECALITH
     Route: 048
     Dates: start: 20200602, end: 20200606
  8. PREDNISONE. [Concomitant]
     Active Substance: PREDNISONE
     Indication: ASPARTATE AMINOTRANSFERASE INCREASED
     Route: 048
     Dates: start: 20200527, end: 20200601
  9. PREDNISONE. [Concomitant]
     Active Substance: PREDNISONE
     Indication: FAECALITH
     Route: 048
     Dates: start: 20200527, end: 20200601
  10. HALOPERIDOL. [Concomitant]
     Active Substance: HALOPERIDOL
     Indication: COVID-19
     Dosage: 5.0MG ONCE/SINGLE ADMINISTRATION
     Route: 042
     Dates: start: 20200608, end: 20200608
  11. DURVALUMAB. [Suspect]
     Active Substance: DURVALUMAB
     Indication: TRANSITIONAL CELL CARCINOMA
     Route: 042
     Dates: start: 20200306, end: 20200306
  12. CISPLATIN. [Suspect]
     Active Substance: CISPLATIN
     Indication: TRANSITIONAL CELL CARCINOMA
     Route: 042
     Dates: start: 20200306, end: 20200306
  13. GEMCITABINE. [Suspect]
     Active Substance: GEMCITABINE
     Indication: TRANSITIONAL CELL CARCINOMA
     Route: 042
     Dates: start: 20200306, end: 20200306
  14. GEMCITABINE. [Suspect]
     Active Substance: GEMCITABINE
     Indication: TRANSITIONAL CELL CARCINOMA
     Route: 042
     Dates: start: 20200313, end: 20200313
  15. XARELTO [Concomitant]
     Active Substance: RIVAROXABAN
     Indication: VENOUS THROMBOSIS
     Route: 048
     Dates: start: 20200210, end: 20200521
  16. MAGNESIUM SULFATE. [Concomitant]
     Active Substance: MAGNESIUM SULFATE
     Indication: HYPOMAGNESAEMIA
     Route: 048
     Dates: start: 20200408, end: 20200516
  17. MAGNESIUM SULFATE. [Concomitant]
     Active Substance: MAGNESIUM SULFATE
     Indication: HYPOMAGNESAEMIA
     Route: 048
     Dates: start: 20200516, end: 20200604
  18. MAGNESIUM SULFATE. [Concomitant]
     Active Substance: MAGNESIUM SULFATE
     Indication: HYPOMAGNESAEMIA
     Route: 048
     Dates: start: 20200605, end: 20200610
  19. GRANULOKINE [Concomitant]
     Active Substance: FILGRASTIM
     Indication: NEUTROPENIA
     Route: 058
     Dates: start: 20200508, end: 20200510
  20. PANTOPRAZOLE [Concomitant]
     Active Substance: PANTOPRAZOLE
     Indication: PROPHYLAXIS
     Route: 048
     Dates: start: 20200510, end: 20200613
  21. TARGOCID [Concomitant]
     Active Substance: TEICOPLANIN
     Indication: FEBRILE NEUTROPENIA
     Route: 042
     Dates: start: 20200609, end: 20200618
  22. PREDNISONE. [Concomitant]
     Active Substance: PREDNISONE
     Indication: FEBRILE NEUTROPENIA
     Route: 042
     Dates: start: 20200607, end: 20200609
  23. PREDNISONE. [Concomitant]
     Active Substance: PREDNISONE
     Indication: GAMMA-GLUTAMYLTRANSFERASE INCREASED
     Route: 048
     Dates: start: 20200527, end: 20200601
  24. PREDNISONE. [Concomitant]
     Active Substance: PREDNISONE
     Indication: FEBRILE NEUTROPENIA
     Route: 048
     Dates: start: 20200602, end: 20200602
  25. ENOXAPARIN [Concomitant]
     Active Substance: ENOXAPARIN
     Indication: THROMBOSIS
     Route: 058
     Dates: start: 20200610, end: 20200610
  26. MEROPENEM. [Concomitant]
     Active Substance: MEROPENEM
     Indication: FEBRILE NEUTROPENIA
     Route: 042
     Dates: start: 20200524, end: 20200610
  27. MEROPENEM. [Concomitant]
     Active Substance: MEROPENEM
     Indication: URINARY TRACT INFECTION
     Route: 042
     Dates: start: 20200524, end: 20200610
  28. ZOLPIDEM [Concomitant]
     Active Substance: ZOLPIDEM TARTRATE
     Indication: DEPRESSION
     Route: 048
     Dates: start: 20200521, end: 20200524
  29. FLUCONAZOLE. [Concomitant]
     Active Substance: FLUCONAZOLE
     Indication: FUNGAL INFECTION
     Route: 048
     Dates: start: 20200606, end: 20200606
  30. DURVALUMAB. [Suspect]
     Active Substance: DURVALUMAB
     Indication: TRANSITIONAL CELL CARCINOMA
     Route: 042
     Dates: start: 20200422, end: 20200422
  31. GEMCITABINE. [Suspect]
     Active Substance: GEMCITABINE
     Indication: TRANSITIONAL CELL CARCINOMA
     Route: 042
     Dates: start: 20200408, end: 20200408
  32. DEXAMETHAZONE [Concomitant]
     Active Substance: DEXAMETHASONE
     Indication: CHEMOTHERAPY SIDE EFFECT PROPHYLAXIS
     Dosage: 8.0MG ONCE/SINGLE ADMINISTRATION
     Route: 042
     Dates: start: 20200429, end: 20200429
  33. GRANULOKINE [Concomitant]
     Active Substance: FILGRASTIM
     Indication: LEUKOPENIA
     Route: 058
     Dates: start: 20200508, end: 20200510
  34. GRANULOKINE [Concomitant]
     Active Substance: FILGRASTIM
     Indication: LEUKOPENIA
     Route: 058
     Dates: start: 20200525, end: 20200526
  35. CEFEPIME [Concomitant]
     Active Substance: CEFEPIME HYDROCHLORIDE
     Indication: LEUKOPENIA
     Dosage: 1.0G ONCE/SINGLE ADMINISTRATION
     Route: 042
     Dates: start: 20200508, end: 20200508
  36. CONCENTRATED RED BLOOD CELLS [Concomitant]
     Indication: ANAEMIA
     Dosage: 333.0ML ONCE/SINGLE ADMINISTRATION
     Route: 042
     Dates: start: 20200520, end: 20200520
  37. PREDNISONE. [Concomitant]
     Active Substance: PREDNISONE
     Indication: FAECALITH
     Route: 048
     Dates: start: 20200523, end: 20200526
  38. PREDNISONE. [Concomitant]
     Active Substance: PREDNISONE
     Indication: GAMMA-GLUTAMYLTRANSFERASE INCREASED
     Route: 048
     Dates: start: 20200523, end: 20200526
  39. PREDNISONE. [Concomitant]
     Active Substance: PREDNISONE
     Indication: FAECALITH
     Route: 042
     Dates: start: 20200607, end: 20200609
  40. CEFUROXIME. [Concomitant]
     Active Substance: CEFUROXIME
     Indication: INFECTED DERMAL CYST
     Route: 048
     Dates: start: 20200327
  41. BROMAZEPAM [Concomitant]
     Active Substance: BROMAZEPAM
     Indication: DEPRESSION
     Route: 048
     Dates: start: 20200527, end: 20200607
  42. DURVALUMAB. [Suspect]
     Active Substance: DURVALUMAB
     Indication: TRANSITIONAL CELL CARCINOMA
     Route: 042
     Dates: start: 20200401, end: 20200401
  43. GEMCITABINE. [Suspect]
     Active Substance: GEMCITABINE
     Indication: TRANSITIONAL CELL CARCINOMA
     Route: 042
     Dates: start: 20200422, end: 20200422
  44. MAGNESIUM SULFATE. [Concomitant]
     Active Substance: MAGNESIUM SULFATE
     Indication: HYPOMAGNESAEMIA
     Route: 042
     Dates: start: 20200610, end: 20200610
  45. CEFEPIME [Concomitant]
     Active Substance: CEFEPIME HYDROCHLORIDE
     Indication: LEUKOPENIA
     Dosage: 2.0G ONCE/SINGLE ADMINISTRATION
     Route: 042
     Dates: start: 20200509, end: 20200519
  46. DIPYRONE [Concomitant]
     Active Substance: DIPYRONE
     Indication: PYREXIA
     Route: 042
     Dates: start: 20200518, end: 20200523
  47. DIPYRONE [Concomitant]
     Active Substance: DIPYRONE
     Indication: GROIN PAIN
     Route: 042
     Dates: start: 20200518, end: 20200523
  48. DIPYRONE [Concomitant]
     Active Substance: DIPYRONE
     Indication: PYREXIA
     Route: 042
     Dates: start: 20200605
  49. PREDNISONE. [Concomitant]
     Active Substance: PREDNISONE
     Indication: ASPARTATE AMINOTRANSFERASE INCREASED
     Route: 042
     Dates: start: 20200607, end: 20200609
  50. POTASSIUM CHLORIDE. [Concomitant]
     Active Substance: POTASSIUM CHLORIDE
     Indication: HYPOKALAEMIA
     Route: 042
     Dates: start: 20200610, end: 20200610
  51. CISPLATIN. [Suspect]
     Active Substance: CISPLATIN
     Indication: TRANSITIONAL CELL CARCINOMA
     Route: 042
     Dates: start: 20200422, end: 20200422
  52. DIPYRONE [Concomitant]
     Active Substance: DIPYRONE
     Indication: PYREXIA
     Route: 042
     Dates: start: 20200531, end: 20200602
  53. DIPYRONE [Concomitant]
     Active Substance: DIPYRONE
     Indication: GROIN PAIN
     Route: 042
     Dates: start: 20200531, end: 20200602
  54. TARGOCID [Concomitant]
     Active Substance: TEICOPLANIN
     Indication: FEBRILE NEUTROPENIA
     Route: 042
     Dates: start: 20200606, end: 20200608
  55. TARGOCID [Concomitant]
     Active Substance: TEICOPLANIN
     Indication: FEBRILE NEUTROPENIA
     Route: 042
     Dates: start: 20200606, end: 20200608
  56. TARGOCID [Concomitant]
     Active Substance: TEICOPLANIN
     Indication: FEBRILE NEUTROPENIA
     Route: 042
     Dates: start: 20200609, end: 20200618
  57. PREDNISONE. [Concomitant]
     Active Substance: PREDNISONE
     Indication: ASPARTATE AMINOTRANSFERASE INCREASED
     Route: 048
     Dates: start: 20200523, end: 20200526
  58. PREDNISONE. [Concomitant]
     Active Substance: PREDNISONE
     Indication: GAMMA-GLUTAMYLTRANSFERASE INCREASED
     Route: 048
     Dates: start: 20200523, end: 20200526
  59. PREDNISONE. [Concomitant]
     Active Substance: PREDNISONE
     Indication: FEBRILE NEUTROPENIA
     Route: 048
     Dates: start: 20200523, end: 20200526
  60. PREDNISONE. [Concomitant]
     Active Substance: PREDNISONE
     Indication: ASPARTATE AMINOTRANSFERASE INCREASED
     Route: 048
     Dates: start: 20200602, end: 20200606
  61. PREDNISONE. [Concomitant]
     Active Substance: PREDNISONE
     Indication: GAMMA-GLUTAMYLTRANSFERASE INCREASED
     Route: 048
     Dates: start: 20200602, end: 20200606
  62. PREDNISONE. [Concomitant]
     Active Substance: PREDNISONE
     Indication: FEBRILE NEUTROPENIA
     Route: 048
     Dates: start: 20200527, end: 20200601
  63. PREDNISONE. [Concomitant]
     Active Substance: PREDNISONE
     Indication: FAECALITH
     Route: 048
     Dates: start: 20200602, end: 20200602
  64. ENOXAPARIN [Concomitant]
     Active Substance: ENOXAPARIN
     Indication: THROMBOSIS
     Route: 058
     Dates: start: 20200609, end: 20200609
  65. LYRICA [Concomitant]
     Active Substance: PREGABALIN
     Indication: GROIN PAIN
     Route: 048
     Dates: start: 20200228
  66. ZOLPIDEM [Concomitant]
     Active Substance: ZOLPIDEM TARTRATE
     Indication: INSOMNIA
     Route: 048
     Dates: start: 20200521, end: 20200524
  67. DIPYRONE [Concomitant]
     Active Substance: DIPYRONE
     Indication: PYREXIA
     Route: 042
     Dates: start: 20200509, end: 20200516
  68. DIPYRONE [Concomitant]
     Active Substance: DIPYRONE
     Indication: PYREXIA
     Route: 048
     Dates: start: 20200228
  69. PREDNISONE. [Concomitant]
     Active Substance: PREDNISONE
     Indication: GAMMA-GLUTAMYLTRANSFERASE INCREASED
     Route: 042
     Dates: start: 20200607, end: 20200609
  70. PREDNISONE. [Concomitant]
     Active Substance: PREDNISONE
     Indication: GAMMA-GLUTAMYLTRANSFERASE INCREASED
     Route: 042
     Dates: start: 20200607, end: 20200609
  71. PREDNISONE. [Concomitant]
     Active Substance: PREDNISONE
     Indication: GAMMA-GLUTAMYLTRANSFERASE INCREASED
     Route: 048
     Dates: start: 20200602, end: 20200602
  72. MEROPENEM. [Concomitant]
     Active Substance: MEROPENEM
     Indication: PNEUMONIA
     Route: 042
     Dates: start: 20200524, end: 20200610
  73. ALPRAZOLAM. [Concomitant]
     Active Substance: ALPRAZOLAM
     Indication: DEPRESSION
     Route: 048
     Dates: start: 20200525, end: 20200526
  74. GRANULOKINE [Concomitant]
     Active Substance: FILGRASTIM
     Indication: NEUTROPENIA
     Route: 058
     Dates: start: 20200525, end: 20200526
  75. CEFEPIME [Concomitant]
     Active Substance: CEFEPIME HYDROCHLORIDE
     Indication: NEUTROPENIA
     Dosage: 1.0G ONCE/SINGLE ADMINISTRATION
     Route: 042
     Dates: start: 20200508, end: 20200508
  76. PREDNISONE. [Concomitant]
     Active Substance: PREDNISONE
     Indication: GAMMA-GLUTAMYLTRANSFERASE INCREASED
     Route: 048
     Dates: start: 20200602, end: 20200606
  77. PREDNISONE. [Concomitant]
     Active Substance: PREDNISONE
     Indication: FEBRILE NEUTROPENIA
     Route: 048
     Dates: start: 20200602, end: 20200606
  78. PREDNISONE. [Concomitant]
     Active Substance: PREDNISONE
     Indication: GAMMA-GLUTAMYLTRANSFERASE INCREASED
     Route: 048
     Dates: start: 20200527, end: 20200601
  79. PREDNISONE. [Concomitant]
     Active Substance: PREDNISONE
     Indication: GAMMA-GLUTAMYLTRANSFERASE INCREASED
     Route: 048
     Dates: start: 20200602, end: 20200602
  80. TRAMAL [Concomitant]
     Active Substance: TRAMADOL
     Indication: GROIN PAIN
     Route: 048
     Dates: start: 20200228
  81. BROMOPRIDE [Concomitant]
     Active Substance: BROMOPRIDE
     Indication: ABDOMINAL PAIN UPPER
     Route: 048
     Dates: start: 20200517
  82. GEMCITABINE. [Suspect]
     Active Substance: GEMCITABINE
     Indication: TRANSITIONAL CELL CARCINOMA
     Route: 042
     Dates: start: 20200401, end: 20200401
  83. GEMCITABINE. [Suspect]
     Active Substance: GEMCITABINE
     Indication: TRANSITIONAL CELL CARCINOMA
     Route: 042
     Dates: start: 20200429, end: 20200429
  84. TAMSULOSIN [Concomitant]
     Active Substance: TAMSULOSIN
     Indication: BENIGN PROSTATIC HYPERPLASIA
     Route: 048
     Dates: start: 20200110
  85. MAGNESIUM SULFATE. [Concomitant]
     Active Substance: MAGNESIUM SULFATE
     Indication: HYPOMAGNESAEMIA
     Route: 048
     Dates: start: 20200604, end: 20200605
  86. DIPYRONE [Concomitant]
     Active Substance: DIPYRONE
     Indication: GROIN PAIN
     Route: 042
     Dates: start: 20200509, end: 20200516
  87. DIPYRONE [Concomitant]
     Active Substance: DIPYRONE
     Indication: GROIN PAIN
     Route: 042
     Dates: start: 20200605
  88. PREDNISONE. [Concomitant]
     Active Substance: PREDNISONE
     Indication: ASPARTATE AMINOTRANSFERASE INCREASED
     Route: 048
     Dates: start: 20200602, end: 20200602
  89. DICLOFENAC [Concomitant]
     Active Substance: DICLOFENAC
     Indication: PROPHYLAXIS
     Dosage: 1.00 APLICATION THREE TIMES A DAY
     Route: 061
     Dates: start: 20200519, end: 20200603
  90. ENOXAPARIN [Concomitant]
     Active Substance: ENOXAPARIN
     Indication: THROMBOSIS
     Route: 058
     Dates: start: 20200520, end: 20200526
  91. MIOSAN [Concomitant]
     Active Substance: CYCLOBENZAPRINE
     Indication: GROIN PAIN
     Route: 048
     Dates: start: 20200228
  92. POTASSIUM CHLORIDE. [Concomitant]
     Active Substance: POTASSIUM CHLORIDE
     Indication: HYPOKALAEMIA
     Route: 042
     Dates: start: 20200610, end: 20200610
  93. SODIUM CHLORIDE. [Concomitant]
     Active Substance: SODIUM CHLORIDE
     Indication: DEHYDRATION
     Route: 042
     Dates: start: 20200606, end: 20200606
  94. GLYCOPHOS [Concomitant]
     Active Substance: SODIUM GLYCEROPHOSPHATE ANHYDROUS
     Indication: HYPOPHOSPHATAEMIA
     Dosage: 20.0ML ONCE/SINGLE ADMINISTRATION
     Route: 042
     Dates: start: 20200609, end: 20200609

REACTIONS (3)
  - Pneumothorax [Recovered/Resolved]
  - Febrile neutropenia [Recovered/Resolved]
  - COVID-19 [Not Recovered/Not Resolved]

NARRATIVE: CASE EVENT DATE: 20200508
